FAERS Safety Report 8963699 (Version 1)
Quarter: 2012Q4

REPORT INFORMATION
  Report Type: 
  Country: GB (occurrence: GB)
  Receive Date: 20121214
  Receipt Date: 20121214
  Transmission Date: 20130627
  Serious: Yes (Hospitalization)
  Sender: FDA-Public Use
  Company Number: GB-PFIZER INC-2003100833

PATIENT
  Age: 46 Year
  Sex: Female
  Weight: 50.8 kg

DRUGS (6)
  1. IBUPROFEN [Suspect]
     Indication: ANALGESIC THERAPY
     Dosage: 400 mg, 3x/day
     Route: 048
     Dates: start: 20030330, end: 20030403
  2. PARACETAMOL [Suspect]
     Indication: ANALGESIC THERAPY
     Dosage: 1 g, 4x/day
     Route: 048
     Dates: start: 20030330, end: 20030403
  3. CLEXANE [Concomitant]
     Indication: DRUG USE FOR UNKNOWN INDICATION
     Dosage: 20 mg, UNK
     Route: 058
     Dates: start: 20030330, end: 20030403
  4. ORAMORPH [Concomitant]
     Indication: ANALGESIA
     Dosage: 5-10mg
     Route: 048
     Dates: start: 20030330, end: 20030403
  5. LOSEC [Concomitant]
     Indication: DRUG USE FOR UNKNOWN INDICATION
     Dosage: 20 mg, UNK
     Route: 048
     Dates: end: 20030304
  6. ZOPICLONE [Concomitant]
     Indication: SEDATION
     Dosage: UNK
     Route: 048

REACTIONS (8)
  - Liver function test abnormal [Recovering/Resolving]
  - Jaundice [Recovering/Resolving]
  - Blood bilirubin increased [None]
  - Aspartate aminotransferase increased [None]
  - Blood alkaline phosphatase increased [None]
  - Gamma-glutamyltransferase increased [None]
  - International normalised ratio increased [None]
  - Hepatic function abnormal [None]
